FAERS Safety Report 9222597 (Version 3)
Quarter: 2013Q4

REPORT INFORMATION
  Report Type: Spontaneous
  Country: GB (occurrence: GB)
  Receive Date: 20130410
  Receipt Date: 20131024
  Transmission Date: 20140711
  Serious: Yes (Death)
  Sender: FDA-Public Use
  Company Number: PHHY2013GB034332

PATIENT
  Age: 75 Year
  Sex: Male

DRUGS (4)
  1. SIMVASTATIN [Suspect]
     Indication: PRODUCT USED FOR UNKNOWN INDICATION
     Dosage: UNK UKN, UNK
     Route: 065
     Dates: start: 20051108
  2. SIMVASTATIN [Suspect]
     Dosage: 20 MG, UNK
     Dates: start: 20080917
  3. SIMVASTATIN [Suspect]
     Dosage: 40 MG, UNK
     Dates: start: 20081110
  4. SIMVASTATIN [Suspect]
     Dosage: UNK UKN, UNK
     Dates: end: 20110728

REACTIONS (2)
  - Pulmonary fibrosis [Fatal]
  - Dyspnoea [Fatal]
